FAERS Safety Report 25784763 (Version 1)
Quarter: 2025Q3

REPORT INFORMATION
  Report Type: Spontaneous
  Country: US (occurrence: US)
  Receive Date: 20250910
  Receipt Date: 20250910
  Transmission Date: 20251021
  Serious: No
  Sender: ESJAY PHARMA
  Company Number: US-ESJAY PHARMA-000975

PATIENT
  Sex: Female

DRUGS (1)
  1. HIPREX [Suspect]
     Active Substance: METHENAMINE HIPPURATE
     Indication: Urinary tract infection

REACTIONS (1)
  - Drug ineffective [Unknown]
